FAERS Safety Report 7481716-X (Version None)
Quarter: 2011Q2

REPORT INFORMATION
  Report Type: 
  Country: None (occurrence: None)
  Receive Date: 20110516
  Receipt Date: 20110510
  Transmission Date: 20111010
  Serious: Yes (Hospitalization)
  Sender: FDA-Public Use
  Company Number: A0833916A

PATIENT
  Age: 48 Year
  Sex: Male
  Weight: 102.3 kg

DRUGS (14)
  1. LANTUS [Concomitant]
  2. ZOCOR [Concomitant]
  3. CRESTOR [Concomitant]
  4. PLAVIX [Concomitant]
  5. GLIPIZIDE [Concomitant]
  6. NOVOLOG [Concomitant]
  7. GLUCOTROL XL [Concomitant]
  8. LIPITOR [Concomitant]
  9. AVANDIA [Suspect]
     Indication: DIABETES MELLITUS
     Dosage: 4MG TWICE PER DAY
     Route: 048
     Dates: start: 19991001, end: 20071001
  10. ALTACE [Concomitant]
  11. GLUCOPHAGE [Concomitant]
  12. HUMULIN R [Concomitant]
  13. METFORMIN HCL [Concomitant]
  14. TOPROL-XL [Concomitant]

REACTIONS (2)
  - CORONARY ARTERY DISEASE [None]
  - MYOCARDIAL INFARCTION [None]
